FAERS Safety Report 4619279-6 (Version None)
Quarter: 2005Q2

REPORT INFORMATION
  Report Type: 
  Country: None (occurrence: None)
  Receive Date: 20050321
  Receipt Date: 20040130
  Transmission Date: 20051028
  Serious: Yes (Hospitalization)
  Sender: FDA-Public Use
  Company Number: 2004-02-0072

PATIENT
  Sex: Male

DRUGS (3)
  1. PEG-INTRON [Suspect]
     Indication: HEPATITIS
     Dosage: SEE IMAGE
     Route: 058
     Dates: end: 20040126
  2. PEG-INTRON [Suspect]
     Indication: HEPATITIS
     Dosage: SEE IMAGE
     Route: 058
     Dates: start: 20040129
  3. REBETOL [Suspect]
     Indication: HEPATITIS
     Dosage: ORAL
     Route: 048

REACTIONS (2)
  - DEHYDRATION [None]
  - DEPRESSION [None]
